FAERS Safety Report 18349975 (Version 1)
Quarter: 2020Q4

REPORT INFORMATION
  Report Type: Spontaneous
  Country: US (occurrence: US)
  Receive Date: 20201006
  Receipt Date: 20201006
  Transmission Date: 20210114
  Serious: Yes (Death)
  Sender: FDA-Public Use
  Company Number: None

PATIENT
  Age: 80 Year
  Sex: Male
  Weight: 121.56 kg

DRUGS (2)
  1. REMDESIVIR. [Suspect]
     Active Substance: REMDESIVIR
  2. DECADRON [Suspect]
     Active Substance: DEXAMETHASONE

REACTIONS (8)
  - COVID-19 pneumonia [None]
  - Blood culture positive [None]
  - False positive investigation result [None]
  - Atrial fibrillation [None]
  - Transfusion [None]
  - Superinfection [None]
  - Streptococcal infection [None]
  - Laboratory test interference [None]

NARRATIVE: CASE EVENT DATE: 20201003
